FAERS Safety Report 6739722-6 (Version None)
Quarter: 2010Q2

REPORT INFORMATION
  Report Type: 
  Country: None (occurrence: None)
  Receive Date: 20100525
  Receipt Date: 20100520
  Transmission Date: 20101027
  Serious: Yes (Other)
  Sender: FDA-Public Use
  Company Number: BR-ROCHE-704424

PATIENT
  Age: 15 Year
  Sex: Female

DRUGS (4)
  1. DIAZEPAM [Suspect]
     Route: 065
  2. DORMONID [Suspect]
     Route: 065
  3. LIDOCAINE [Suspect]
     Indication: ENDOSCOPY
     Dosage: DRUG: UNSPECIFIED LIDOCAINE OINTMENT
     Route: 065
  4. LIDOCAINE [Suspect]
     Dosage: FORM: LIQUID. FREQUENCY: TWO DOSES. DRUG: UNSPECIFIED LIDOCAINE LIQUID.
     Route: 048

REACTIONS (2)
  - COMA [None]
  - MALAISE [None]
